FAERS Safety Report 4627997-9 (Version None)
Quarter: 2005Q2

REPORT INFORMATION
  Report Type: 
  Country: None (occurrence: None)
  Receive Date: 20050406
  Receipt Date: 20041011
  Transmission Date: 20051028
  Serious: Yes (Hospitalization)
  Sender: FDA-Public Use
  Company Number: US-ROCHE-383092

PATIENT
  Age: 47 Year
  Sex: Female

DRUGS (5)
  1. PEGASYS [Suspect]
     Indication: HEPATITIS C
     Route: 058
     Dates: start: 20040525, end: 20041005
  2. COPEGUS [Suspect]
     Indication: HEPATITIS C
     Route: 048
     Dates: start: 20040525, end: 20040629
  3. METFORMIN HCL [Concomitant]
     Route: 048
     Dates: start: 20030615
  4. HYZAAR [Concomitant]
     Route: 048
     Dates: start: 20030615
  5. PAXIL [Concomitant]
     Indication: DEPRESSION
     Dosage: ON 20 JUL 04, DOSE INCREASED TO 40 MG DAILY.

REACTIONS (11)
  - ANAEMIA [None]
  - ASCITES [None]
  - ASTHENIA [None]
  - CREATININE RENAL CLEARANCE DECREASED [None]
  - DEPRESSION [None]
  - DIZZINESS [None]
  - DYSPNOEA EXERTIONAL [None]
  - FATIGUE [None]
  - LIVER FUNCTION TEST ABNORMAL [None]
  - NEUTROPENIA [None]
  - VAGINAL HAEMORRHAGE [None]
